FAERS Safety Report 23924459 (Version 1)
Quarter: 2024Q2

REPORT INFORMATION
  Report Type: Other
  Country: US (occurrence: US)
  Receive Date: 20240531
  Receipt Date: 20240531
  Transmission Date: 20240716
  Serious: Yes (Death)
  Sender: FDA-Public Use
  Company Number: US-ALVOGEN-2024094708

PATIENT
  Age: 52 Year
  Sex: Female

DRUGS (6)
  1. OXYCODONE [Suspect]
     Active Substance: OXYCODONE\OXYCODONE HYDROCHLORIDE
     Indication: Product used for unknown indication
  2. XANAX [Concomitant]
     Active Substance: ALPRAZOLAM
     Indication: Product used for unknown indication
  3. GABAPENTIN [Concomitant]
     Active Substance: GABAPENTIN
     Indication: Product used for unknown indication
  4. TRAZODONE [Concomitant]
     Active Substance: TRAZODONE HYDROCHLORIDE
     Indication: Product used for unknown indication
  5. METHYL ALCOHOL [Concomitant]
     Active Substance: METHYL ALCOHOL
     Indication: Product used for unknown indication
  6. ISOPROPANOLAMINE [Concomitant]
     Active Substance: ISOPROPANOLAMINE
     Indication: Product used for unknown indication

REACTIONS (2)
  - Product counterfeit [Fatal]
  - Prescription drug used without a prescription [Unknown]
